FAERS Safety Report 12362270 (Version 1)
Quarter: 2016Q2

REPORT INFORMATION
  Report Type: Other
  Country: FR (occurrence: FR)
  Receive Date: 20160512
  Receipt Date: 20160512
  Transmission Date: 20160815
  Serious: Yes (Hospitalization)
  Sender: FDA-Public Use
  Company Number: FR-MYLANLABS-2016M1019266

PATIENT

DRUGS (5)
  1. METRONIDAZOLE B BRAUN [Suspect]
     Active Substance: METRONIDAZOLE
     Indication: SEPTIC SHOCK
     Dosage: 500 MG, TID
     Route: 042
     Dates: start: 20140815, end: 20140822
  2. EUPANTOL [Suspect]
     Active Substance: PANTOPRAZOLE SODIUM
     Indication: PRODUCT USED FOR UNKNOWN INDICATION
     Dosage: 1 DF, UNK
     Route: 042
     Dates: start: 20140817, end: 20140831
  3. SMOFKABIVEN [Suspect]
     Active Substance: UNSPECIFIED INGREDIENT
     Indication: PARENTERAL NUTRITION
     Dosage: 1500 ML, QD
     Route: 042
     Dates: start: 20140817, end: 20140822
  4. SMOFKABIVEN [Suspect]
     Active Substance: UNSPECIFIED INGREDIENT
     Dosage: 1000 ML, QD
     Route: 042
     Dates: start: 20140823, end: 20140825
  5. PIPERACILLIN AND TAZOBACTAM [Suspect]
     Active Substance: PIPERACILLIN SODIUM\TAZOBACTAM SODIUM
     Indication: SEPTIC SHOCK
     Dosage: 1 DF, TID
     Route: 042
     Dates: start: 20140815, end: 20140822

REACTIONS (2)
  - Hepatocellular injury [Not Recovered/Not Resolved]
  - Cholestasis [Not Recovered/Not Resolved]

NARRATIVE: CASE EVENT DATE: 20140819
